FAERS Safety Report 13142859 (Version 2)
Quarter: 2017Q1

REPORT INFORMATION
  Report Type: Report from Study
  Country: None (occurrence: CA)
  Receive Date: 20170123
  Receipt Date: 20170131
  Transmission Date: 20170428
  Serious: Yes (Hospitalization, Other)
  Sender: FDA-Public Use
  Company Number: CA-ABBVIE-17P-028-1848251-00

PATIENT
  Age: 35 Year
  Sex: Female
  Weight: 56 kg

DRUGS (2)
  1. HUMIRA [Suspect]
     Active Substance: ADALIMUMAB
     Route: 058
     Dates: start: 20161205
  2. HUMIRA [Suspect]
     Active Substance: ADALIMUMAB
     Indication: CROHN^S DISEASE
     Route: 058
     Dates: start: 20100513, end: 201609

REACTIONS (3)
  - Female genital tract fistula [Recovering/Resolving]
  - Enterovesical fistula [Not Recovered/Not Resolved]
  - Wound infection [Recovering/Resolving]

NARRATIVE: CASE EVENT DATE: 2016
